FAERS Safety Report 6655528-0 (Version None)
Quarter: 2010Q1

REPORT INFORMATION
  Report Type: 
  Country: None (occurrence: None)
  Receive Date: 20100329
  Receipt Date: 20100324
  Transmission Date: 20100710
  Serious: Yes (Other)
  Sender: FDA-Public Use
  Company Number: DE-AMGEN-UK380878

PATIENT
  Sex: Male
  Weight: 79 kg

DRUGS (8)
  1. ARANESP [Suspect]
     Indication: ANAEMIA OF MALIGNANT DISEASE
     Route: 042
     Dates: start: 20050330, end: 20070405
  2. ANTIHYPERTENSIVES [Concomitant]
     Route: 065
  3. ANTIDIURETIC NOS [Concomitant]
     Route: 065
  4. VITAMIN B COMPLEX TAB [Concomitant]
     Route: 065
  5. VITAMIN C [Concomitant]
     Route: 065
  6. VITAMIN D [Concomitant]
     Route: 065
  7. FOLIC ACID [Concomitant]
     Route: 065
  8. AMINO ACIDS [Concomitant]
     Route: 065

REACTIONS (1)
  - SHUNT OCCLUSION [None]
